FAERS Safety Report 5358737-6 (Version None)
Quarter: 2007Q2

REPORT INFORMATION
  Report Type: 
  Country: None (occurrence: None)
  Receive Date: 20070615
  Receipt Date: 20070604
  Transmission Date: 20071010
  Serious: Yes (Other)
  Sender: FDA-Public Use
  Company Number: ZA-ROCHE-497262

PATIENT
  Age: 39 Year
  Sex: Male

DRUGS (3)
  1. PEGASYS [Suspect]
     Indication: HEPATITIS C
     Route: 042
     Dates: start: 20070205, end: 20070512
  2. COPEGUS [Suspect]
     Indication: HEPATITIS C
     Route: 048
     Dates: end: 20070512
  3. DICLOFENAC [Concomitant]
     Dosage: REGIMEN REPORTED AS OCCASIONAL.

REACTIONS (2)
  - EPILEPSY [None]
  - HYPERTHYROIDISM [None]
